FAERS Safety Report 9867103 (Version 2)
Quarter: 2017Q2

REPORT INFORMATION
  Report Type: Report from Study
  Country: US (occurrence: US)
  Receive Date: 20140204
  Receipt Date: 20170627
  Transmission Date: 20170830
  Serious: Yes (Other)
  Sender: FDA-Public Use
  Company Number: US-ROCHE-1338524

PATIENT
  Sex: Male
  Weight: 90.9 kg

DRUGS (3)
  1. NASONEX [Concomitant]
     Active Substance: MOMETASONE FUROATE
     Dosage: PRN
     Route: 045
  2. ALBUTEROL. [Concomitant]
     Active Substance: ALBUTEROL
     Dosage: PRN
     Route: 065
  3. NUTROPIN AQ [Suspect]
     Active Substance: SOMATROPIN
     Indication: GROWTH HORMONE DEFICIENCY
     Route: 058
     Dates: start: 1998, end: 20160727

REACTIONS (13)
  - Hyperlipidaemia [Unknown]
  - Asthenia [Unknown]
  - Cognitive disorder [Unknown]
  - Headache [Unknown]
  - Amnesia [Unknown]
  - Optic atrophy [Unknown]
  - Primary hypothyroidism [Not Recovered/Not Resolved]
  - Type V hyperlipidaemia [Unknown]
  - Goitre [Not Recovered/Not Resolved]
  - Learning disability [Unknown]
  - Lethargy [Unknown]
  - Seizure [Unknown]
  - Seasonal allergy [Unknown]
